FAERS Safety Report 7773563-6 (Version None)
Quarter: 2011Q3

REPORT INFORMATION
  Report Type: 
  Country: None (occurrence: None)
  Receive Date: 20110922
  Receipt Date: 20110913
  Transmission Date: 20111222
  Serious: Yes (Hospitalization)
  Sender: FDA-Public Use
  Company Number: NL-AMGEN-NLDSP2011047738

PATIENT
  Age: 63 Year
  Sex: Female

DRUGS (5)
  1. ENBREL [Suspect]
     Indication: RHEUMATOID ARTHRITIS
     Dosage: 50 MG, WEEKLY
     Dates: start: 20060103, end: 20110825
  2. OMEPRAZOLE [Concomitant]
     Dosage: 20 MG, 1X/DAY
  3. METHOTREXATE [Concomitant]
     Dosage: 5 MG, WEEKLY
  4. MELOXICAM [Concomitant]
     Dosage: 15 MG, 1X/DAY
  5. FOLIC ACID [Concomitant]
     Dosage: 5 MG, WEEKLY

REACTIONS (1)
  - LUNG NEOPLASM MALIGNANT [None]
